FAERS Safety Report 8614448-2 (Version None)
Quarter: 2012Q3

REPORT INFORMATION
  Report Type: 
  Country: None (occurrence: None)
  Receive Date: 20120823
  Receipt Date: 20120816
  Transmission Date: 20120928
  Serious: Yes (Other)
  Sender: FDA-Public Use
  Company Number: PHHY2012US072161

PATIENT

DRUGS (1)
  1. CYCLOSPORINE [Suspect]
     Indication: CYSTITIS INTERSTITIAL

REACTIONS (2)
  - HYPERURICAEMIA [None]
  - GOUT [None]
